FAERS Safety Report 4768179-X (Version None)
Quarter: 2005Q3

REPORT INFORMATION
  Report Type: 
  Country: None (occurrence: None)
  Receive Date: 20050912
  Receipt Date: 20050912
  Transmission Date: 20060218
  Serious: Yes (Hospitalization)
  Sender: FDA-Public Use
  Company Number: None

PATIENT
  Sex: Male
  Weight: 63.9 kg

DRUGS (9)
  1. DIVALPROEX 500 MG - ABBOTT (DEPAKOTE) [Suspect]
     Indication: EPILEPSY
     Dosage: DIVALPROEX 1000 MG BID AND 500 MG QD
     Dates: start: 20000411, end: 20050714
  2. DIVALPROEX 500 MG - ABBOTT (DEPAKOTE) [Suspect]
     Indication: GRAND MAL CONVULSION
     Dosage: DIVALPROEX 1000 MG BID AND 500 MG QD
     Dates: start: 20000411, end: 20050714
  3. PHENYTOIN [Concomitant]
  4. PHENOBARBITAL TAB [Concomitant]
  5. LEVOTHYROXINE SODIUM [Concomitant]
  6. CALCUIM CARBONATE [Concomitant]
  7. VITAMIN [Concomitant]
  8. ANTACID / SIMETHICONE [Concomitant]
  9. MULTIVITAMIN W/MINERIALS [Concomitant]

REACTIONS (3)
  - ASTHENIA [None]
  - ORAL INTAKE REDUCED [None]
  - PANCREATITIS ACUTE [None]
